FAERS Safety Report 10388742 (Version 1)
Quarter: 2014Q1

REPORT INFORMATION
  Report Type: Spontaneous
  Country: US (occurrence: None)
  Receive Date: 20140306
  Receipt Date: 20140306
  Transmission Date: 20141002
  Serious: Yes (Other)
  Sender: FDA-Public Use
  Company Number: 163-21880-13123771

PATIENT
  Age: 73 Year
  Sex: Male

DRUGS (1)
  1. REVLIMID (LENALIDOMIDE) (10 MILLIGRAM, CAPSULES) [Suspect]
     Indication: LYMPHOMA
     Dosage: 21 IN 28 D
     Route: 048
     Dates: start: 20131011, end: 20131201

REACTIONS (3)
  - Heart rate decreased [None]
  - Syncope [None]
  - Skin lesion [None]
